FAERS Safety Report 19809594 (Version 1)
Quarter: 2021Q3

REPORT INFORMATION
  Report Type: Spontaneous
  Country: US (occurrence: US)
  Receive Date: 20210908
  Receipt Date: 20210908
  Transmission Date: 20211014
  Serious: No
  Sender: FDA-Public Use
  Company Number: US-ROCHE-2677650

PATIENT
  Age: 53 Year
  Sex: Female

DRUGS (4)
  1. VENCLEXTA [Suspect]
     Active Substance: VENETOCLAX
     Indication: CHRONIC LYMPHOCYTIC LEUKAEMIA
     Route: 065
  2. VENCLEXTA [Suspect]
     Active Substance: VENETOCLAX
     Route: 065
  3. ALECENSA [Suspect]
     Active Substance: ALECTINIB HYDROCHLORIDE
     Indication: NON-SMALL CELL LUNG CANCER
     Route: 065
  4. VENCLEXTA [Suspect]
     Active Substance: VENETOCLAX
     Route: 065

REACTIONS (6)
  - Insomnia [Unknown]
  - Oedema peripheral [Unknown]
  - Myalgia [Unknown]
  - Arthralgia [Unknown]
  - Product storage error [Unknown]
  - Pain [Unknown]
